FAERS Safety Report 8294858-6 (Version None)
Quarter: 2012Q2

REPORT INFORMATION
  Report Type: 
  Country: None (occurrence: None)
  Receive Date: 20120418
  Receipt Date: 20120416
  Transmission Date: 20120825
  Serious: No
  Sender: FDA-Public Use
  Company Number: US-PFIZER INC-2012093633

PATIENT
  Sex: Male
  Weight: 90.703 kg

DRUGS (5)
  1. LIPITOR [Concomitant]
     Indication: BLOOD CHOLESTEROL INCREASED
     Dosage: 20 MG, UNK
  2. CHANTIX [Suspect]
     Dosage: 0.5 MG, 1X/DAY
     Route: 048
     Dates: start: 20120414
  3. INDERAL [Concomitant]
     Indication: HEART RATE IRREGULAR
     Dosage: 20 MG, UNK
  4. CHANTIX [Suspect]
     Indication: SMOKING CESSATION THERAPY
     Dosage: 0.5 MG, 1X/DAY
     Route: 048
     Dates: start: 20070101, end: 20070101
  5. INDERAL [Concomitant]
     Dosage: 120 MG, UNK

REACTIONS (8)
  - BEDRIDDEN [None]
  - NAUSEA [None]
  - HYPERHIDROSIS [None]
  - DIARRHOEA [None]
  - MALAISE [None]
  - VOMITING [None]
  - PYREXIA [None]
  - DIZZINESS [None]
